FAERS Safety Report 5964837-X (Version None)
Quarter: 2008Q4

REPORT INFORMATION
  Report Type: 
  Country: None (occurrence: None)
  Receive Date: 20081120
  Receipt Date: 20081105
  Transmission Date: 20090506
  Serious: Yes (Other)
  Sender: FDA-Public Use
  Company Number: 2008S1020011

PATIENT
  Age: 36 Year
  Sex: Female

DRUGS (3)
  1. RISPERDAL [Suspect]
     Indication: PSYCHOTIC DISORDER
     Dosage: 4 MG; ORAL
     Route: 048
     Dates: start: 20070101
  2. RIFINAH (RIFINAH) [Suspect]
     Indication: LATENT TUBERCULOSIS
     Dosage: ORAL
     Route: 048
     Dates: start: 20080821, end: 20080918
  3. RISPERDAL CONSTA [Suspect]
     Indication: PSYCHOTIC DISORDER
     Dosage: INTRAMUSCULAR
     Route: 030
     Dates: start: 20070101

REACTIONS (1)
  - DRUG INEFFECTIVE [None]
